FAERS Safety Report 21245794 (Version 2)
Quarter: 2022Q3

REPORT INFORMATION
  Report Type: Spontaneous
  Country: JP (occurrence: JP)
  Receive Date: 20220824
  Receipt Date: 20220921
  Transmission Date: 20221027
  Serious: Yes (Hospitalization, Other)
  Sender: FDA-Public Use
  Company Number: JP-TAKEDA-2022TJP070294

PATIENT
  Age: 87 Year
  Sex: Female

DRUGS (2)
  1. ROZEREM [Suspect]
     Active Substance: RAMELTEON
     Indication: Product used for unknown indication
     Dosage: 4 MILLIGRAM
     Route: 048
  2. RIVOTRIL [Concomitant]
     Active Substance: CLONAZEPAM
     Dosage: UNK
     Route: 048

REACTIONS (3)
  - Spinal compression fracture [Unknown]
  - Wrong technique in product usage process [Unknown]
  - Product prescribing error [Unknown]
